FAERS Safety Report 6600274-2 (Version None)
Quarter: 2010Q1

REPORT INFORMATION
  Report Type: 
  Country: None (occurrence: None)
  Receive Date: 20100217
  Receipt Date: 20100127
  Transmission Date: 20100710
  Serious: Yes (Other)
  Sender: FDA-Public Use
  Company Number: 2010AP000091

PATIENT
  Age: 18 Year

DRUGS (2)
  1. LEVETIRACETAM [Suspect]
  2. DIVALPROEX SODIUM [Suspect]

REACTIONS (3)
  - CONDITION AGGRAVATED [None]
  - CONVULSION [None]
  - IRON OVERLOAD [None]
